APPROVED DRUG PRODUCT: VIGABATRIN
Active Ingredient: VIGABATRIN
Strength: 500MG/PACKET
Dosage Form/Route: FOR SOLUTION;ORAL
Application: A215363 | Product #001 | TE Code: AA
Applicant: MSN LABORATORIES PRIVATE LTD
Approved: Sep 7, 2022 | RLD: No | RS: No | Type: RX